FAERS Safety Report 7783124-0 (Version None)
Quarter: 2011Q3

REPORT INFORMATION
  Report Type: 
  Country: None (occurrence: None)
  Receive Date: 20110928
  Receipt Date: 20110922
  Transmission Date: 20111222
  Serious: Yes (Death, Other)
  Sender: FDA-Public Use
  Company Number: PHHY2011US37412

PATIENT
  Sex: Female
  Weight: 47 kg

DRUGS (17)
  1. ALLOPURINOL [Concomitant]
     Dosage: 150 MG, Q96H
  2. DILTIAZEM HCL [Concomitant]
  3. SINALER [Concomitant]
     Dosage: 10 MG, QD
  4. CALCIUM CARBONATE [Concomitant]
  5. MEGACE [Concomitant]
     Dosage: 40 MG, QID
  6. RANITIDINE [Concomitant]
     Dosage: 150 MG, BID
  7. GLEEVEC [Suspect]
     Dosage: 400 MG, DAILY
     Route: 048
     Dates: start: 20110211
  8. TRAMADOL [Concomitant]
     Dosage: 50 MG, QD
  9. OMEPRAZOLE [Concomitant]
     Dosage: 40 MG, UNK
  10. SIMVASTATIN [Concomitant]
     Dosage: 40 MG, QD
     Route: 048
  11. GLEEVEC [Suspect]
     Indication: CHRONIC MYELOID LEUKAEMIA
     Dosage: 400 MG, DAILY
     Route: 048
     Dates: start: 20101202
  12. AMITRIPTYLINE HCL [Concomitant]
  13. LASIX [Concomitant]
     Dosage: 40 MG, QD
  14. LEVOTHYROXINE SODIUM [Concomitant]
     Dosage: 0.05 MG, UNK
  15. SUMATRIPTAN SUCCINATE [Concomitant]
  16. ADVAIR DISKUS 100/50 [Concomitant]
  17. FERROUS SULFATE TAB [Concomitant]
     Dosage: 325 MG, BID

REACTIONS (4)
  - ASTHENIA [None]
  - DEATH [None]
  - CARDIAC FAILURE CONGESTIVE [None]
  - OEDEMA PERIPHERAL [None]
